FAERS Safety Report 7583458-9 (Version None)
Quarter: 2011Q2

REPORT INFORMATION
  Report Type: 
  Country: None (occurrence: None)
  Receive Date: 20110630
  Receipt Date: 20110628
  Transmission Date: 20111010
  Serious: No
  Sender: FDA-Public Use
  Company Number: US-TEVA-288346USA

PATIENT
  Sex: Male

DRUGS (2)
  1. PROAIR HFA [Suspect]
     Indication: CHRONIC OBSTRUCTIVE PULMONARY DISEASE
     Route: 055
     Dates: start: 20110101, end: 20110504
  2. PROAIR HFA [Suspect]
     Indication: BRONCHITIS CHRONIC

REACTIONS (4)
  - DYSPNOEA [None]
  - COUGH [None]
  - DRUG EFFECT DECREASED [None]
  - DEVICE MALFUNCTION [None]
